FAERS Safety Report 5116219-0 (Version None)
Quarter: 2006Q3

REPORT INFORMATION
  Report Type: 
  Country: None (occurrence: None)
  Receive Date: 20060927
  Receipt Date: 20050516
  Transmission Date: 20061208
  Serious: Yes (Hospitalization)
  Sender: FDA-Public Use
  Company Number: US-GLAXOSMITHKLINE-A0559055A

PATIENT
  Sex: Female

DRUGS (11)
  1. PAXIL [Suspect]
     Indication: DEPRESSION
     Route: 048
     Dates: end: 20030501
  2. PAXIL CR [Suspect]
     Indication: DEPRESSION
     Dosage: 37.5MG UNKNOWN
     Route: 048
     Dates: start: 20030501, end: 20031101
  3. AMBIEN [Concomitant]
  4. WELLBUTRIN [Concomitant]
  5. METABOLIFE [Concomitant]
  6. EXCEDRIN (MIGRAINE) [Concomitant]
  7. ALCOHOL [Concomitant]
  8. REMERON [Concomitant]
  9. FLEXERIL [Concomitant]
  10. VIOXX [Concomitant]
  11. PREDNISONE [Concomitant]

REACTIONS (16)
  - ANXIETY [None]
  - CONDITION AGGRAVATED [None]
  - DEPRESSION [None]
  - DRUG WITHDRAWAL SYNDROME [None]
  - FACE INJURY [None]
  - FEELING OF DESPAIR [None]
  - HEADACHE [None]
  - INSOMNIA [None]
  - INTENTIONAL SELF-INJURY [None]
  - LACERATION [None]
  - LOWER LIMB FRACTURE [None]
  - MOOD SWINGS [None]
  - NIGHTMARE [None]
  - OSTEOARTHRITIS [None]
  - ROAD TRAFFIC ACCIDENT [None]
  - SUICIDE ATTEMPT [None]
